FAERS Safety Report 7725803-7 (Version None)
Quarter: 2011Q3

REPORT INFORMATION
  Report Type: 
  Country: None (occurrence: None)
  Receive Date: 20110902
  Receipt Date: 20110822
  Transmission Date: 20111222
  Serious: Yes (Death)
  Sender: FDA-Public Use
  Company Number: SE-SANOFI-AVENTIS-2011SA053744

PATIENT
  Age: 62 Year
  Sex: Male

DRUGS (5)
  1. WARFARIN SODIUM [Concomitant]
     Indication: ATRIAL FLUTTER
     Route: 065
     Dates: end: 20110101
  2. BISOPROLOL FUMARATE [Concomitant]
     Route: 065
  3. MULTAQ [Suspect]
     Indication: ATRIAL FLUTTER
     Route: 048
     Dates: start: 20101230, end: 20110210
  4. FUROSEMIDE [Concomitant]
     Route: 065
  5. FRAGMIN [Concomitant]
     Route: 065

REACTIONS (3)
  - APLASTIC ANAEMIA [None]
  - THROMBOCYTOPENIA [None]
  - IDIOPATHIC THROMBOCYTOPENIC PURPURA [None]
